FAERS Safety Report 5841518-4 (Version None)
Quarter: 2008Q3

REPORT INFORMATION
  Report Type: 
  Country: None (occurrence: None)
  Receive Date: 20080731
  Receipt Date: 20080624
  Transmission Date: 20090109
  Serious: No
  Sender: FDA-Public Use
  Company Number: US200806005601

PATIENT
  Age: 68 Year
  Sex: Female

DRUGS (10)
  1. BYETTA [Suspect]
     Indication: TYPE 2 DIABETES MELLITUS
     Dosage: 5 UG, 2/D, SUBCUTANEOUS
     Route: 058
     Dates: start: 20080613
  2. GLYBURIDE W/METFORMIN HYDROCHLORIE (GLIBENCLAMIDE, METFORMIN HYDROCHLO [Concomitant]
  3. RAMIPRIL [Concomitant]
  4. FLAXSEED OIL (LINUM USITATISSIMUM SEED OIL) [Concomitant]
  5. CINNAMON (CINNAMOMUM VERUM) [Concomitant]
  6. VITAMIN C (ASORBIC ACID) [Concomitant]
  7. VITAMIN E (HERBAL OIL NOS) [Concomitant]
  8. GLUCOSAMINE W/CHONDROITIN SULFATE, GLUCOSAMINE) [Concomitant]
  9. MULTIVITAMIN (VITAMIN NOS) [Concomitant]
  10. ECOTRIN (ACETYLSALYLIC ACID) [Concomitant]

REACTIONS (4)
  - DYSPEPSIA [None]
  - MYALGIA [None]
  - NAUSEA [None]
  - NEURALGIA [None]
